FAERS Safety Report 6615856-1 (Version None)
Quarter: 2010Q1

REPORT INFORMATION
  Report Type: 
  Country: None (occurrence: None)
  Receive Date: 20100305
  Receipt Date: 20100223
  Transmission Date: 20100710
  Serious: Yes (Other)
  Sender: FDA-Public Use
  Company Number: CA-JNJFOC-20100210691

PATIENT
  Sex: Female

DRUGS (3)
  1. SIMPONI [Suspect]
     Indication: ANKYLOSING SPONDYLITIS
     Route: 058
  2. SIMPONI [Suspect]
     Route: 058
  3. SIMPONI [Suspect]
     Route: 058

REACTIONS (8)
  - BONE PAIN [None]
  - DIZZINESS [None]
  - FEELING COLD [None]
  - GAIT DISTURBANCE [None]
  - HOT FLUSH [None]
  - LOSS OF CONSCIOUSNESS [None]
  - NAUSEA [None]
  - NIGHT SWEATS [None]
